FAERS Safety Report 8172124-7 (Version None)
Quarter: 2012Q1

REPORT INFORMATION
  Report Type: 
  Country: None (occurrence: None)
  Receive Date: 20120228
  Receipt Date: 20120223
  Transmission Date: 20120608
  Serious: Yes (Hospitalization)
  Sender: FDA-Public Use
  Company Number: US-GILEAD-2012-0051377

PATIENT
  Age: 20 Year
  Sex: Female

DRUGS (5)
  1. RITONAVIR [Concomitant]
     Indication: PROPHYLAXIS AGAINST HIV INFECTION
     Dosage: UNK
  2. COMBIVIR [Concomitant]
     Indication: PROPHYLAXIS AGAINST HIV INFECTION
     Dosage: UNK
  3. ATAZANAVIR SULFATE [Concomitant]
     Indication: PROPHYLAXIS AGAINST HIV INFECTION
     Dosage: UNK
  4. EFAVIRENZ [Concomitant]
     Indication: PROPHYLAXIS AGAINST HIV INFECTION
     Dosage: UNK
  5. TRUVADA [Suspect]
     Indication: PROPHYLAXIS AGAINST HIV INFECTION
     Dosage: UNK

REACTIONS (6)
  - NAUSEA [None]
  - DIARRHOEA [None]
  - VOMITING [None]
  - IMPAIRED GASTRIC EMPTYING [None]
  - DEVICE RELATED INFECTION [None]
  - SEPTIC EMBOLUS [None]
